FAERS Safety Report 11876305 (Version 2)
Quarter: 2016Q1

REPORT INFORMATION
  Report Type: Spontaneous
  Country: GB (occurrence: GB)
  Receive Date: 20151229
  Receipt Date: 20160108
  Transmission Date: 20160526
  Serious: Yes (Death, Life-Threatening)
  Sender: FDA-Public Use
  Company Number: GB-JNJFOC-20151220719

PATIENT
  Age: 73 Year
  Sex: Male

DRUGS (14)
  1. LEVOTHYROXINE. [Concomitant]
     Active Substance: LEVOTHYROXINE
     Route: 065
  2. XARELTO [Suspect]
     Active Substance: RIVAROXABAN
     Indication: HYPERTENSIVE HEART DISEASE
     Route: 048
     Dates: end: 20150914
  3. XARELTO [Suspect]
     Active Substance: RIVAROXABAN
     Indication: CEREBROVASCULAR ACCIDENT PROPHYLAXIS
     Route: 048
     Dates: end: 20150914
  4. GTN [Concomitant]
     Active Substance: NITROGLYCERIN
     Route: 065
  5. LOSARTAN. [Concomitant]
     Active Substance: LOSARTAN
     Route: 065
  6. ISOTARD XL [Concomitant]
     Route: 065
  7. BISOPROLOL [Concomitant]
     Active Substance: BISOPROLOL
     Route: 065
  8. ASPIRIN. [Concomitant]
     Active Substance: ASPIRIN
     Route: 065
  9. CITALOPRAM [Concomitant]
     Active Substance: CITALOPRAM HYDROBROMIDE
     Route: 065
  10. XARELTO [Suspect]
     Active Substance: RIVAROXABAN
     Indication: MYOCARDIAL ISCHAEMIA
     Route: 048
     Dates: end: 20150914
  11. XARELTO [Suspect]
     Active Substance: RIVAROXABAN
     Indication: ATRIAL FIBRILLATION
     Route: 048
     Dates: end: 20150914
  12. NICORANDIL [Concomitant]
     Active Substance: NICORANDIL
     Route: 065
  13. ATORVASTATIN [Concomitant]
     Active Substance: ATORVASTATIN
     Route: 065
  14. AMLODIPINE [Concomitant]
     Active Substance: AMLODIPINE BESYLATE
     Route: 065

REACTIONS (2)
  - Rib fracture [Not Recovered/Not Resolved]
  - Haemothorax [Fatal]

NARRATIVE: CASE EVENT DATE: 20150906
